FAERS Safety Report 20849320 (Version 4)
Quarter: 2024Q3

REPORT INFORMATION
  Report Type: Report from Study
  Country: US (occurrence: US)
  Receive Date: 20220519
  Receipt Date: 20240711
  Transmission Date: 20241017
  Serious: No
  Sender: KYOWA
  Company Number: US-KYOWAKIRIN-2022BKK006137

PATIENT

DRUGS (3)
  1. BUROSUMAB [Suspect]
     Active Substance: BUROSUMAB
     Indication: Osteomalacia
     Dosage: 20 MG, 1X/4 WEEKS (EVERY 28 DAYS)
     Route: 058
     Dates: start: 20211109
  2. BUROSUMAB [Suspect]
     Active Substance: BUROSUMAB
     Indication: Osteomalacia
     Dosage: 10 MG, 1X/4 WEEKS
     Route: 058
     Dates: start: 20211109
  3. BUROSUMAB [Suspect]
     Active Substance: BUROSUMAB
     Indication: Product used for unknown indication
     Dosage: UNK, 1X/4 WEEKS
     Route: 065
     Dates: start: 20211008

REACTIONS (5)
  - Blood phosphorus decreased [Unknown]
  - Pruritus [Unknown]
  - Amenorrhoea [Recovered/Resolved]
  - Pain [Unknown]
  - Product use in unapproved indication [Not Recovered/Not Resolved]

NARRATIVE: CASE EVENT DATE: 20211109
